FAERS Safety Report 4356284-1 (Version None)
Quarter: 2004Q2

REPORT INFORMATION
  Report Type: 
  Country: None (occurrence: None)
  Receive Date: 20040506
  Receipt Date: 20040423
  Transmission Date: 20050107
  Serious: Yes (Hospitalization)
  Sender: FDA-Public Use
  Company Number: 2004024540

PATIENT
  Age: 61 Year
  Sex: Male

DRUGS (22)
  1. LIPITOR [Suspect]
     Indication: HYPERLIPIDAEMIA
     Dosage: 20 MG (BID), ORAL
     Route: 048
     Dates: start: 20030119, end: 20040401
  2. TIAPRIDE HYDROCHLORIDE (TIAPRIDE HYDROCHLORIDE) [Suspect]
     Indication: HEAD INJURY
     Dosage: 80 MG (DAILY), ORAL
     Route: 048
     Dates: start: 19921215, end: 20040404
  3. HALOPERIDOL [Suspect]
     Indication: HEAD INJURY
     Dosage: 8 MG (DAILY), ORAL
     Route: 048
     Dates: start: 19921215, end: 20040401
  4. FLUNITRAZEPAM (FLUNITRAZEPAM) [Suspect]
     Indication: HEAD INJURY
     Dosage: 2 MG (DAILY), ORAL
     Route: 048
     Dates: start: 19921215
  5. NEOSTIGMINE (NEOSTIGMINE) [Suspect]
     Indication: HEAD INJURY
     Dosage: 5 MG (DAILY), ORAL
     Route: 048
     Dates: start: 19930119
  6. ETHYL LOFLAZEPATE (ETHYL LOFLAZEPATE) [Concomitant]
  7. MAGNESIUM OXIDE (MAGNESIUM OXIDE) [Concomitant]
  8. NICERGOLINE (NICERGOLINE) [Concomitant]
  9. VERAPAMIL HCL [Concomitant]
  10. TRIHEXYPHENIDYL HYDROCHLORIDE (TRIHEXYPHENIDIL HYDROCHLORIDE) [Concomitant]
  11. ANETHOLE TRITHIONE (ANETHOLE TRITHIONE) [Concomitant]
  12. UBIDECARENONE (UBIDECARENONE) [Concomitant]
  13. CISAPRIDE (CISAPRIDE) [Concomitant]
  14. ANIRACETAM (ANIRACETAM) [Concomitant]
  15. PROFENAMINE (PROFENAMINE) [Concomitant]
  16. VITAMEDIN ((CYANOCOBALAMIN, PYRIDOXINE HYDROCHLORIDE, THIAMINE DISULFI [Concomitant]
  17. NIFEDIPINE [Concomitant]
  18. SULPIRIDE (SULPIRIDE) [Concomitant]
  19. MARZULENE S (LEVOGLUTAMIDE, SODIUM GUALENATE) [Concomitant]
  20. DIAZEPAM [Concomitant]
  21. BIFEMELANE HYDROCHLORIDE (BIFEMELANE HYDROCHLORIDE) [Concomitant]
  22. TROXIPIDE (TROXIPIDE) [Concomitant]

REACTIONS (26)
  - ALANINE AMINOTRANSFERASE INCREASED [None]
  - ASPARTATE AMINOTRANSFERASE INCREASED [None]
  - BASOPHIL COUNT INCREASED [None]
  - BLOOD ALKALINE PHOSPHATASE INCREASED [None]
  - BLOOD CHLORIDE DECREASED [None]
  - BLOOD CHOLESTEROL INCREASED [None]
  - BLOOD LACTATE DEHYDROGENASE INCREASED [None]
  - BLOOD POTASSIUM INCREASED [None]
  - BLOOD PRESSURE INCREASED [None]
  - BLOOD SODIUM INCREASED [None]
  - CONVULSION [None]
  - EOSINOPHIL COUNT INCREASED [None]
  - GAIT DISTURBANCE [None]
  - GAMMA-GLUTAMYLTRANSFERASE INCREASED [None]
  - HAEMODIALYSIS [None]
  - HAEMOGLOBIN DECREASED [None]
  - HEAD INJURY [None]
  - LYMPHOCYTE COUNT DECREASED [None]
  - MONOCYTE COUNT DECREASED [None]
  - NEUTROPHIL COUNT INCREASED [None]
  - PLATELET COUNT DECREASED [None]
  - PNEUMONIA [None]
  - RED BLOOD CELL COUNT DECREASED [None]
  - RENAL FAILURE ACUTE [None]
  - RHABDOMYOLYSIS [None]
  - WHITE BLOOD CELL COUNT INCREASED [None]
